FAERS Safety Report 9297892 (Version 2)
Quarter: 2013Q2

REPORT INFORMATION
  Report Type: Spontaneous
  Country: FR (occurrence: FR)
  Receive Date: 20130520
  Receipt Date: 20130528
  Transmission Date: 20140414
  Serious: Yes (Death, Hospitalization)
  Sender: FDA-Public Use
  Company Number: FR-JNJFOC-20130508465

PATIENT
  Age: 81 Year
  Sex: Male

DRUGS (14)
  1. XARELTO [Suspect]
     Indication: CEREBROVASCULAR ACCIDENT PROPHYLAXIS
     Route: 048
  2. XARELTO [Suspect]
     Indication: ATRIAL FIBRILLATION
     Route: 048
  3. RISPERDAL [Concomitant]
     Route: 065
  4. PLAVIX [Concomitant]
     Route: 065
  5. TAHOR [Concomitant]
     Route: 065
  6. INEXIUM [Concomitant]
     Route: 065
  7. DIAMICRON [Concomitant]
     Route: 065
  8. NORSET [Concomitant]
     Route: 065
  9. TAREG [Concomitant]
     Route: 065
  10. PERMIXON [Concomitant]
     Route: 065
  11. AZANTAC [Concomitant]
     Route: 065
  12. LYSANXIA [Concomitant]
     Route: 065
  13. LASILIX [Concomitant]
     Route: 065
  14. CARDENSIEL [Concomitant]
     Route: 065

REACTIONS (1)
  - Respiratory distress [Fatal]
